FAERS Safety Report 13810425 (Version 1)
Quarter: 2017Q3

REPORT INFORMATION
  Report Type: Spontaneous
  Country: US (occurrence: US)
  Receive Date: 20170728
  Receipt Date: 20170728
  Transmission Date: 20171127
  Serious: Yes (Other)
  Sender: FDA-Public Use
  Company Number: US-ACTELION-A-US2017-157162

PATIENT
  Age: 60 Year
  Sex: Male

DRUGS (11)
  1. SIMVASTATIN. [Concomitant]
     Active Substance: SIMVASTATIN
  2. OPSUMIT [Suspect]
     Active Substance: MACITENTAN
     Indication: PULMONARY ARTERIAL HYPERTENSION
     Dosage: 10 MG, QD
     Route: 048
     Dates: start: 201705
  3. AVAPRO [Concomitant]
     Active Substance: IRBESARTAN
  4. RENAL [Concomitant]
  5. PRILOSEC [Concomitant]
     Active Substance: OMEPRAZOLE MAGNESIUM
  6. CARDURA [Concomitant]
     Active Substance: DOXAZOSIN MESYLATE
  7. PHOSLO [Concomitant]
     Active Substance: CALCIUM ACETATE
  8. HUMULIN N [Concomitant]
     Active Substance: INSULIN HUMAN
  9. LOPID [Concomitant]
     Active Substance: GEMFIBROZIL
  10. COREG [Concomitant]
     Active Substance: CARVEDILOL
  11. RESTORIL [Concomitant]
     Active Substance: TEMAZEPAM

REACTIONS (2)
  - Haemodialysis [Unknown]
  - Procedural hypotension [Recovering/Resolving]

NARRATIVE: CASE EVENT DATE: 20170605
